FAERS Safety Report 18036358 (Version 1)
Quarter: 2020Q3

REPORT INFORMATION
  Report Type: Spontaneous
  Country: US (occurrence: US)
  Receive Date: 20200717
  Receipt Date: 20200717
  Transmission Date: 20201103
  Serious: Yes (Hospitalization)
  Sender: FDA-Public Use
  Company Number: US-LUPIN PHARMACEUTICALS INC.-2020-03345

PATIENT
  Age: 2 Year
  Sex: Female

DRUGS (1)
  1. BOSENTAN. [Suspect]
     Active Substance: BOSENTAN
     Indication: PULMONARY VASCULAR DISORDER
     Dosage: UNK
     Route: 065
     Dates: start: 201811

REACTIONS (2)
  - Nasopharyngitis [Unknown]
  - Product use issue [Unknown]

NARRATIVE: CASE EVENT DATE: 202005
